FAERS Safety Report 16782235 (Version 1)
Quarter: 2019Q3

REPORT INFORMATION
  Report Type: Spontaneous
  Country: US (occurrence: US)
  Receive Date: 20190906
  Receipt Date: 20190906
  Transmission Date: 20191005
  Serious: Yes (Hospitalization)
  Sender: FDA-Public Use
  Company Number: US-ASTRAZENECA-2019SF25243

PATIENT
  Age: 986 Month
  Sex: Female

DRUGS (3)
  1. ALBUTEROL NEBULIZER [Concomitant]
     Active Substance: ALBUTEROL
  2. BEVESPI AEROSPHERE [Suspect]
     Active Substance: FORMOTEROL FUMARATE\GLYCOPYRROLATE
     Indication: CHRONIC OBSTRUCTIVE PULMONARY DISEASE
     Route: 055
     Dates: start: 201903, end: 20190415
  3. LASIX [Concomitant]
     Active Substance: FUROSEMIDE
     Indication: PERIPHERAL SWELLING

REACTIONS (10)
  - Dysphonia [Recovered/Resolved]
  - Decreased appetite [Recovered/Resolved]
  - Pneumonia [Unknown]
  - Gastrostomy tube site complication [Unknown]
  - Productive cough [Recovered/Resolved]
  - Guillain-Barre syndrome [Unknown]
  - Pulmonary thrombosis [Unknown]
  - Intentional product misuse [Unknown]
  - Influenza [Unknown]
  - Myalgia [Unknown]

NARRATIVE: CASE EVENT DATE: 201904
